FAERS Safety Report 16601847 (Version 1)
Quarter: 2019Q3

REPORT INFORMATION
  Report Type: Report from Study
  Country: US (occurrence: US)
  Receive Date: 20190719
  Receipt Date: 20190719
  Transmission Date: 20191004
  Serious: Yes (Death, Hospitalization)
  Sender: FDA-Public Use
  Company Number: US-ACTELION-A-NJ2019-191150

PATIENT
  Age: 78 Year
  Sex: Female

DRUGS (2)
  1. OPSUMIT [Suspect]
     Active Substance: MACITENTAN
     Indication: PRODUCT USED FOR UNKNOWN INDICATION
     Dosage: 10 MG
     Route: 048
     Dates: start: 201905
  2. MORPHINE [Concomitant]
     Active Substance: MORPHINE

REACTIONS (7)
  - Hospitalisation [Unknown]
  - Hypoxia [Unknown]
  - Dizziness [Not Recovered/Not Resolved]
  - Adverse event [Unknown]
  - Malaise [Unknown]
  - Death [Fatal]
  - Fatigue [Not Recovered/Not Resolved]

NARRATIVE: CASE EVENT DATE: 20190520
